FAERS Safety Report 8016057-5 (Version None)
Quarter: 2011Q4

REPORT INFORMATION
  Report Type: 
  Country: None (occurrence: None)
  Receive Date: 20111230
  Receipt Date: 20111221
  Transmission Date: 20120403
  Serious: Yes (Other)
  Sender: FDA-Public Use
  Company Number: DE-US-EMD SERONO, INC.-7102896

PATIENT

DRUGS (1)
  1. REBIF [Suspect]
     Indication: RELAPSING-REMITTING MULTIPLE SCLEROSIS

REACTIONS (4)
  - MYALGIA [None]
  - NECROSIS [None]
  - LIVER FUNCTION TEST ABNORMAL [None]
  - INJECTION SITE INFLAMMATION [None]
